FAERS Safety Report 6279455-6 (Version None)
Quarter: 2009Q3

REPORT INFORMATION
  Report Type: 
  Country: None (occurrence: None)
  Receive Date: 20090721
  Receipt Date: 20090703
  Transmission Date: 20100115
  Serious: Yes (Hospitalization, Other)
  Sender: FDA-Public Use
  Company Number: 322977

PATIENT
  Sex: Female

DRUGS (5)
  1. FLUCONAZOLE [Suspect]
     Indication: ENDOCARDITIS BACTERIAL
     Dosage: 400 MG
  2. (CIPROFLOXACIN) [Suspect]
     Indication: ENDOCARDITIS BACTERIAL
     Dosage: 1000 MG
  3. (DAPTOMYCIN) [Suspect]
     Indication: ENDOCARDITIS BACTERIAL
     Dosage: 500 MG
  4. NEORAL [Suspect]
     Indication: APLASTIC ANAEMIA
  5. (RIFAMPICIN) [Suspect]
     Indication: ENDOCARDITIS BACTERIAL
     Dosage: 120 MG

REACTIONS (1)
  - DRUG INTERACTION [None]
